FAERS Safety Report 13169918 (Version 1)
Quarter: 2017Q1

REPORT INFORMATION
  Report Type: Spontaneous
  Country: US (occurrence: US)
  Receive Date: 20170131
  Receipt Date: 20170131
  Transmission Date: 20170428
  Serious: Yes (Hospitalization, Other)
  Sender: FDA-Public Use
  Company Number: US-UNITED THERAPEUTICS-UNT-2017-000236

PATIENT
  Age: 64 Year
  Sex: Female
  Weight: 68.27 kg

DRUGS (4)
  1. REMODULIN [Suspect]
     Active Substance: TREPROSTINIL
     Indication: PULMONARY HYPERTENSION
     Dosage: 0.024 ?G/KG, CONTINUING
     Route: 041
     Dates: start: 20160310
  2. REVATIO [Concomitant]
     Active Substance: SILDENAFIL CITRATE
     Indication: PRODUCT USED FOR UNKNOWN INDICATION
  3. OPSUMIT [Concomitant]
     Active Substance: MACITENTAN
     Indication: PRODUCT USED FOR UNKNOWN INDICATION
  4. OPSITE [Suspect]
     Active Substance: POLYURETHANE
     Indication: PRODUCT USED FOR UNKNOWN INDICATION
     Dosage: UNK
     Route: 065

REACTIONS (4)
  - Infection [Unknown]
  - Cellulitis [Unknown]
  - Dermatitis contact [Unknown]
  - Device related infection [Unknown]

NARRATIVE: CASE EVENT DATE: 201701
